FAERS Safety Report 18580925 (Version 1)
Quarter: 2020Q4

REPORT INFORMATION
  Report Type: Spontaneous
  Country: US (occurrence: US)
  Receive Date: 20201204
  Receipt Date: 20201204
  Transmission Date: 20210114
  Serious: Yes (Other)
  Sender: FDA-Public Use
  Company Number: US-ALLERGAN-2046323US

PATIENT
  Sex: Female

DRUGS (2)
  1. KYBELLA [Suspect]
     Active Substance: DEOXYCHOLIC ACID
     Dosage: 6 ML, SINGLE
     Dates: start: 20200829, end: 20200829
  2. KYBELLA [Suspect]
     Active Substance: DEOXYCHOLIC ACID
     Indication: PRODUCT USED FOR UNKNOWN INDICATION
     Dosage: 6.6 ML, SINGLE
     Dates: start: 20201017, end: 20201017

REACTIONS (2)
  - Radioisotope scan abnormal [Unknown]
  - Lymphadenopathy [Unknown]
